FAERS Safety Report 15328312 (Version 1)
Quarter: 2018Q4

REPORT INFORMATION
  Report Type: Spontaneous
  Country: NL (occurrence: NL)
  Receive Date: 20180829
  Receipt Date: 20180829
  Transmission Date: 20190204
  Serious: Yes (Hospitalization)
  Sender: FDA-Public Use
  Company Number: NL-TEVA-2018-NL-948917

PATIENT
  Age: 47 Year
  Sex: Female

DRUGS (5)
  1. RITONAVIR. [Concomitant]
     Active Substance: RITONAVIR
     Dosage: 100 MILLIGRAM DAILY; 1DD100MG
     Route: 065
  2. BETAMETHASON [Concomitant]
     Active Substance: BETAMETHASONE
     Route: 065
  3. FLUCONAZOL CAPSULE, 200 MG (MILLIGRAM) [Suspect]
     Active Substance: FLUCONAZOLE
     Indication: INFECTION
     Dosage: 4DD 500 MG
     Route: 065
     Dates: start: 20180719, end: 20180721
  4. EMTRIBITABINE/TENOFOVIRDISO 200/245MG [Concomitant]
     Route: 065
  5. DARUNAVIR [Concomitant]
     Active Substance: DARUNAVIR
     Dosage: 800 MILLIGRAM DAILY; 1DD800MG
     Route: 065

REACTIONS (2)
  - Jaundice [Recovering/Resolving]
  - Hyperbilirubinaemia [Recovering/Resolving]

NARRATIVE: CASE EVENT DATE: 20180721
